FAERS Safety Report 5121991-X (Version None)
Quarter: 2006Q4

REPORT INFORMATION
  Report Type: 
  Country: None (occurrence: None)
  Receive Date: 20061003
  Receipt Date: 20060921
  Transmission Date: 20070319
  Serious: Yes (Hospitalization)
  Sender: FDA-Public Use
  Company Number: 2006-02158

PATIENT
  Age: 61 Year
  Sex: Female
  Weight: 209 kg

DRUGS (2)
  1. VELCADE [Suspect]
     Indication: MULTIPLE MYELOMA
     Dosage: 2.50 MG, INTRAVENOUS
     Route: 042
     Dates: start: 20060626, end: 20060807
  2. DOXIL                     CAELYX (DOXORUBICIN) [Suspect]
     Indication: MULTIPLE MYELOMA
     Dosage: 59.40 MG, INTRAVENOUS
     Route: 042
     Dates: start: 20060629, end: 20060810

REACTIONS (4)
  - MALAISE [None]
  - NAUSEA [None]
  - PALMAR-PLANTAR ERYTHRODYSAESTHESIA SYNDROME [None]
  - SECRETION DISCHARGE [None]
